FAERS Safety Report 13248514 (Version 1)
Quarter: 2017Q1

REPORT INFORMATION
  Report Type: Spontaneous
  Country: US (occurrence: US)
  Receive Date: 20170218
  Receipt Date: 20170218
  Transmission Date: 20170428
  Serious: No
  Sender: FDA-Public Use
  Company Number: US-ALLERGAN-1658830US

PATIENT
  Sex: Female
  Weight: 58.5 kg

DRUGS (1)
  1. RESTASIS [Suspect]
     Active Substance: CYCLOSPORINE
     Indication: DRY EYE
     Dosage: 2 GTT, BID (AM AND PM)
     Route: 047
     Dates: start: 201605, end: 20160530

REACTIONS (1)
  - Asthenopia [Recovered/Resolved]
